FAERS Safety Report 18037285 (Version 1)
Quarter: 2020Q3

REPORT INFORMATION
  Report Type: Report from Study
  Country: FR (occurrence: FR)
  Receive Date: 20200717
  Receipt Date: 20200717
  Transmission Date: 20201103
  Serious: Yes (Other)
  Sender: FDA-Public Use
  Company Number: FR-PFIZER INC-2020264169

PATIENT

DRUGS (3)
  1. RITUXIMAB. [Suspect]
     Active Substance: RITUXIMAB
     Indication: MANTLE CELL LYMPHOMA
     Dosage: UNK, CYCLIC (ADMINISTERED EVERY 4 WEEKS (28 DAYS) FOR 6 CYCLES)
  2. CYTARABINE. [Suspect]
     Active Substance: CYTARABINE
     Indication: MANTLE CELL LYMPHOMA
     Dosage: UNK, CYCLIC (HIGH?DOSE, ADMINISTERED EVERY 4 WEEKS (28 DAYS) FOR 6 CYCLES)
  3. TEMSIROLIMUS. [Suspect]
     Active Substance: TEMSIROLIMUS
     Indication: MANTLE CELL LYMPHOMA
     Dosage: 15 MG, CYCLIC (ADMINISTERED IV AT DAY 2, DAY 8 AND DAY 15)
     Route: 042

REACTIONS (1)
  - Hyperglycaemia [Unknown]
